FAERS Safety Report 22348050 (Version 3)
Quarter: 2023Q2

REPORT INFORMATION
  Report Type: Spontaneous
  Country: CA (occurrence: CA)
  Receive Date: 20230522
  Receipt Date: 20230623
  Transmission Date: 20230721
  Serious: Yes (Other)
  Sender: FDA-Public Use
  Company Number: CA-CELLTRION INC.-2022CA004391

PATIENT

DRUGS (14)
  1. INFLECTRA [Suspect]
     Active Substance: INFLIXIMAB-DYYB
     Indication: Rheumatoid arthritis
     Dosage: 3 MG/KG, WEEK 0,2,6 THEN Q 6WEEKS
     Route: 042
  2. INFLECTRA [Suspect]
     Active Substance: INFLIXIMAB-DYYB
     Dosage: 175 MG (3MG/KG), WEEK 0,2,6 THEN Q 6WEEKS
     Route: 042
     Dates: start: 20220310
  3. INFLECTRA [Suspect]
     Active Substance: INFLIXIMAB-DYYB
     Dosage: 3 MG/KG, WEEK 0,2,6 THEN Q 6WEEKS
     Route: 042
     Dates: start: 20220310
  4. INFLECTRA [Suspect]
     Active Substance: INFLIXIMAB-DYYB
     Dosage: 175 MG (3MG/KG) WEEK 0,2,6 THEN Q 6WEEKS
     Route: 042
     Dates: start: 20220324
  5. INFLECTRA [Suspect]
     Active Substance: INFLIXIMAB-DYYB
     Dosage: 175 MG (3MG/KG) WEEK 0,2,6 THEN Q 6WEEKS
     Route: 042
     Dates: start: 20220824
  6. INFLECTRA [Suspect]
     Active Substance: INFLIXIMAB-DYYB
     Dosage: 3 MG/KG, WEEK 0,2,6 THEN Q 6WEEKS
     Route: 042
     Dates: start: 20221005
  7. INFLECTRA [Suspect]
     Active Substance: INFLIXIMAB-DYYB
     Dosage: 3 MG/KG, WEEK 0,2,6 THEN Q 6WEEKS
     Route: 042
     Dates: start: 20221116
  8. INFLECTRA [Suspect]
     Active Substance: INFLIXIMAB-DYYB
     Dosage: 3 MG/KG, WEEK 0,2,6 THEN Q 6WEEKS
     Route: 042
     Dates: start: 20221228
  9. INFLECTRA [Suspect]
     Active Substance: INFLIXIMAB-DYYB
     Dosage: 175 MG (3 MG/KG) EVERY 6 WEEKS
     Route: 042
     Dates: start: 20230208
  10. INFLECTRA [Suspect]
     Active Substance: INFLIXIMAB-DYYB
     Dosage: 175 MG (3 MG/KG) EVERY 6 WEEKS
     Route: 042
     Dates: start: 20230315
  11. INFLECTRA [Suspect]
     Active Substance: INFLIXIMAB-DYYB
     Dosage: 3MG/KG, EVERY 6 WEEKS (WEEK 0,2,6 THEN Q 6WEEKS)
     Route: 042
     Dates: start: 20230429
  12. INFLECTRA [Suspect]
     Active Substance: INFLIXIMAB-DYYB
     Dosage: 180 MG, AFTER 6 WEEKS
     Route: 042
     Dates: start: 20230614
  13. METHOTREXATE [Concomitant]
     Active Substance: METHOTREXATE
     Indication: Rheumatoid arthritis
     Dosage: 1 DF, DOSAGE INFORMATION NOT AVAILABLE
     Route: 065
  14. PREDNISONE [Concomitant]
     Active Substance: PREDNISONE
     Dosage: 1 DF, DOSAGE INFORMATION NOT AVAILABLE
     Route: 065

REACTIONS (2)
  - Condition aggravated [Recovering/Resolving]
  - Off label use [Unknown]

NARRATIVE: CASE EVENT DATE: 20221116
